FAERS Safety Report 9706704 (Version 1)
Quarter: 2013Q4

REPORT INFORMATION
  Report Type: Spontaneous
  Country: PL (occurrence: PL)
  Receive Date: 20131125
  Receipt Date: 20131125
  Transmission Date: 20140711
  Serious: Yes (Hospitalization)
  Sender: FDA-Public Use
  Company Number: PL-ELI_LILLY_AND_COMPANY-PL201311004423

PATIENT
  Age: 56 Year
  Sex: Female

DRUGS (2)
  1. ALIMTA [Suspect]
     Indication: LUNG NEOPLASM MALIGNANT
     Dosage: 500 MG/M2, CYCLICAL
     Route: 042
     Dates: start: 20120612
  2. CISPLATIN [Concomitant]
     Dosage: 75 MG/M2, UNK
     Route: 042
     Dates: start: 20120612

REACTIONS (2)
  - Bronchitis [Recovered/Resolved]
  - Bronchopulmonary disease [Unknown]
